FAERS Safety Report 25347487 (Version 1)
Quarter: 2025Q2

REPORT INFORMATION
  Report Type: Spontaneous
  Country: US (occurrence: None)
  Receive Date: 20250522
  Receipt Date: 20250522
  Transmission Date: 20250717
  Serious: Yes (Death)
  Sender: FDA-CTU
  Company Number: None

PATIENT
  Sex: Male

DRUGS (2)
  1. LOKELMA [Suspect]
     Active Substance: SODIUM ZIRCONIUM CYCLOSILICATE
     Indication: Chronic kidney disease
     Dosage: FREQUENCY : TWICE A WEEK;?
     Dates: start: 20230922
  2. PRESERVISION CAP AR EDS 2 [Concomitant]

REACTIONS (1)
  - Death [None]
